FAERS Safety Report 7572005-3 (Version None)
Quarter: 2011Q2

REPORT INFORMATION
  Report Type: 
  Country: None (occurrence: None)
  Receive Date: 20110620
  Receipt Date: 20110610
  Transmission Date: 20111010
  Serious: Yes (Other)
  Sender: FDA-Public Use
  Company Number: UTC-007827

PATIENT
  Age: 30 Year
  Sex: Female

DRUGS (6)
  1. REMODULIN [Suspect]
     Indication: PULMONARY ARTERIAL HYPERTENSION
     Dosage: SUBCUTANEOUS
     Route: 058
     Dates: start: 20110125
  2. LETAIRIS [Concomitant]
  3. ASPIRIN [Concomitant]
  4. HYDROCORTONE [Concomitant]
  5. ADCIRCA [Concomitant]
  6. DIGOXIN [Concomitant]

REACTIONS (2)
  - BLISTER [None]
  - RASH [None]
